FAERS Safety Report 10503010 (Version 2)
Quarter: 2014Q4

REPORT INFORMATION
  Report Type: Spontaneous
  Country: US (occurrence: US)
  Receive Date: 20141007
  Receipt Date: 20141110
  Transmission Date: 20150528
  Serious: Yes (Other)
  Sender: FDA-Public Use
  Company Number: CHPA2014US013255

PATIENT
  Sex: Female

DRUGS (3)
  1. KERI ORIGINAL [Suspect]
     Active Substance: LANOLIN\MINERAL OIL
     Indication: MILIARIA
     Dosage: UNK
     Route: 061
     Dates: start: 1964
  2. KERI ORIGINAL [Suspect]
     Active Substance: LANOLIN\MINERAL OIL
     Indication: OFF LABEL USE
     Dosage: UNK
     Route: 061
  3. KERI ORIGINAL [Suspect]
     Active Substance: LANOLIN\MINERAL OIL
     Dosage: UNK

REACTIONS (2)
  - Arthritis [Unknown]
  - Therapeutic response unexpected [Unknown]
